FAERS Safety Report 4873384-8 (Version None)
Quarter: 2005Q4

REPORT INFORMATION
  Report Type: 
  Country: None (occurrence: None)
  Receive Date: 20051201
  Receipt Date: 20050712
  Transmission Date: 20060501
  Serious: No
  Sender: FDA-Public Use
  Company Number: 2005PV000347

PATIENT
  Age: 56 Year
  Sex: Female
  Weight: 118.3888 kg

DRUGS (11)
  1. BYETTA [Suspect]
     Indication: DIABETES MELLITUS NON-INSULIN-DEPENDENT
     Dosage: SEE IMAGE
     Route: 058
     Dates: start: 20050707, end: 20050709
  2. BYETTA [Suspect]
     Indication: DIABETES MELLITUS NON-INSULIN-DEPENDENT
     Dosage: SEE IMAGE
     Route: 058
     Dates: start: 20050710
  3. METFORMIN [Concomitant]
  4. GLUCOTROL [Concomitant]
  5. SYNTHROID [Concomitant]
  6. LIPITOR [Concomitant]
  7. FOSAMAX [Concomitant]
  8. MONOPRIL [Concomitant]
  9. GLUCOPHAGE [Concomitant]
  10. AVANDIA [Concomitant]
  11. LANTUS [Concomitant]

REACTIONS (6)
  - ASTHENIA [None]
  - MYALGIA [None]
  - NAUSEA [None]
  - TELANGIECTASIA [None]
  - VOMITING [None]
  - WEIGHT DECREASED [None]
